FAERS Safety Report 4368531-0 (Version None)
Quarter: 2004Q2

REPORT INFORMATION
  Report Type: 
  Country: None (occurrence: None)
  Receive Date: 20040602
  Receipt Date: 20040305
  Transmission Date: 20050107
  Serious: No
  Sender: FDA-Public Use
  Company Number: US-GLAXOSMITHKLINE-A0501418A

PATIENT

DRUGS (1)
  1. AUGMENTIN [Suspect]
     Indication: ILL-DEFINED DISORDER
     Dosage: 400MG TWICE PER DAY
     Route: 048

REACTIONS (1)
  - MYALGIA [None]
